FAERS Safety Report 7461629-X (Version None)
Quarter: 2011Q2

REPORT INFORMATION
  Report Type: 
  Country: None (occurrence: None)
  Receive Date: 20110427
  Receipt Date: 20110419
  Transmission Date: 20111010
  Serious: Yes (Death)
  Sender: FDA-Public Use
  Company Number: DKLU1067210

PATIENT
  Age: 7 Year
  Sex: Male

DRUGS (19)
  1. ADVAIR DISKUS 100/50 [Concomitant]
  2. SABRIL [Suspect]
     Indication: INFANTILE SPASMS
     Dosage: 500 MG MILLIGRAM(S), 2 IN 1 D, ORAL 1000 MG MILLIGRAM(S), 2 IN 1 D, ORAL
     Route: 048
     Dates: start: 20101025, end: 20110101
  3. SABRIL [Suspect]
     Indication: INFANTILE SPASMS
     Dosage: 500 MG MILLIGRAM(S), 2 IN 1 D, ORAL 1000 MG MILLIGRAM(S), 2 IN 1 D, ORAL
     Route: 048
     Dates: start: 20110101
  4. SYNTHROID [Concomitant]
  5. CLARITIN [Concomitant]
  6. XOPENEX (LEVOSALBUTAMOL) (NEBULISER SOLUTION) [Concomitant]
  7. FLUTICASONE PROPIONATE [Concomitant]
  8. RAMELTEON [Concomitant]
  9. REGLAN [Concomitant]
  10. MIRALAX [Concomitant]
  11. MULTIVITAMIN WITH IRON [Concomitant]
  12. DIASTAT [Concomitant]
  13. TOPAMAX [Concomitant]
  14. VIMPAT [Concomitant]
  15. FLONASE (FLUTICASONE PROPIONATE) (NASAL SPRAY) [Concomitant]
  16. CALCIUM (CALCIUM) [Concomitant]
  17. AXID [Concomitant]
  18. KEPPRA [Concomitant]
  19. BACLOFEN [Concomitant]

REACTIONS (1)
  - IMPAIRED GASTRIC EMPTYING [None]
